FAERS Safety Report 19656534 (Version 1)
Quarter: 2021Q3

REPORT INFORMATION
  Report Type: Spontaneous
  Country: PT (occurrence: PT)
  Receive Date: 20210804
  Receipt Date: 20210804
  Transmission Date: 20211014
  Serious: Yes (Other)
  Sender: FDA-Public Use
  Company Number: PT-TEVA-2021-PT-1938149

PATIENT
  Age: 7 Decade
  Sex: Female

DRUGS (13)
  1. PROCARBAZINE [Suspect]
     Active Substance: PROCARBAZINE
     Indication: CENTRAL NERVOUS SYSTEM LYMPHOMA
     Dosage: 100 MG/M2 DAILY;
     Route: 065
     Dates: start: 201503
  2. RITUXIMAB. [Suspect]
     Active Substance: RITUXIMAB
     Route: 065
     Dates: start: 2016
  3. METHOTREXATE. [Suspect]
     Active Substance: METHOTREXATE
     Indication: CENTRAL NERVOUS SYSTEM LYMPHOMA
     Dosage: 3.5 G/M2
     Route: 065
     Dates: start: 201503
  4. METHOTREXATE. [Suspect]
     Active Substance: METHOTREXATE
     Dosage: 400 MICROG/0.1 ML; MONTHLY
     Route: 065
     Dates: start: 2018
  5. METHOTREXATE. [Suspect]
     Active Substance: METHOTREXATE
     Route: 065
     Dates: start: 2016
  6. METHOTREXATE. [Suspect]
     Active Substance: METHOTREXATE
     Dosage: 400 MICROG/0.1 ML; WEEKLY
     Route: 065
     Dates: start: 201904
  7. RITUXIMAB. [Suspect]
     Active Substance: RITUXIMAB
     Dosage: 1MG/0.1 ML; 4 WEEKLY CYCLES
     Route: 065
     Dates: start: 201901
  8. CYTARABINE. [Suspect]
     Active Substance: CYTARABINE
     Indication: CENTRAL NERVOUS SYSTEM LYMPHOMA
     Dosage: 3 G/M2/DAY (2 CYCLES)
     Route: 065
     Dates: start: 201511
  9. RITUXIMAB. [Suspect]
     Active Substance: RITUXIMAB
     Indication: CENTRAL NERVOUS SYSTEM LYMPHOMA
     Route: 065
     Dates: start: 201503
  10. VINCRISTINE [Suspect]
     Active Substance: VINCRISTINE
     Indication: CENTRAL NERVOUS SYSTEM LYMPHOMA
     Route: 065
     Dates: start: 201503
  11. METHOTREXATE. [Suspect]
     Active Substance: METHOTREXATE
     Route: 065
     Dates: start: 2016
  12. METHOTREXATE. [Suspect]
     Active Substance: METHOTREXATE
     Dosage: 400 MICROG/0.1 ML; BI?WEEKLY (8 CYCLES)
     Route: 065
     Dates: start: 201803
  13. METHOTREXATE. [Suspect]
     Active Substance: METHOTREXATE
     Dosage: 400 MICROG/0.1 ML; WEEKLY (4 CYCLES)
     Route: 065
     Dates: start: 2018

REACTIONS (3)
  - Off label use [Unknown]
  - Drug ineffective [Unknown]
  - Drug resistance [Unknown]

NARRATIVE: CASE EVENT DATE: 201503
